FAERS Safety Report 17105968 (Version 2)
Quarter: 2019Q4

REPORT INFORMATION
  Report Type: Spontaneous
  Country: FR (occurrence: FR)
  Receive Date: 20191203
  Receipt Date: 20191206
  Transmission Date: 20200122
  Serious: Yes (Hospitalization)
  Sender: FDA-Public Use
  Company Number: FR-MYLANLABS-2019M1116361

PATIENT
  Age: 61 Year
  Sex: Male
  Weight: 83.6 kg

DRUGS (12)
  1. VYXEOS [Suspect]
     Active Substance: CYTARABINE\DAUNORUBICIN
     Indication: ACUTE MYELOID LEUKAEMIA
     Dosage: 86/195 MG PERF DE 90MIN ? J1, J3, J5
     Route: 042
     Dates: start: 20190524
  2. ATORVASTATINE ARROW [Suspect]
     Active Substance: ATORVASTATIN
     Indication: HYPERCHOLESTEROLAEMIA
     Dosage: 0-0-1
     Route: 048
     Dates: start: 20190522, end: 20190619
  3. VALACYCLOVIR [Suspect]
     Active Substance: VALACYCLOVIR HYDROCHLORIDE
     Indication: ANTIVIRAL TREATMENT
     Dosage: 1-0-1
     Route: 048
     Dates: start: 20190523
  4. NOXAFIL [Suspect]
     Active Substance: POSACONAZOLE
     Indication: FUNGAL INFECTION
     Dosage: 3-0-0
     Route: 048
     Dates: start: 20190528
  5. VALACYCLOVIR [Suspect]
     Active Substance: VALACYCLOVIR HYDROCHLORIDE
     Indication: PATHOGEN RESISTANCE
  6. PIPERACILLIN AND TAZOBACTAM [Suspect]
     Active Substance: PIPERACILLIN SODIUM\TAZOBACTAM SODIUM
     Indication: INFECTION
     Dosage: 4 DOSAGE FORM, QD
     Route: 042
     Dates: start: 20190526, end: 20190621
  7. EXJADE [Suspect]
     Active Substance: DEFERASIROX
     Indication: IRON OVERLOAD
     Dosage: 1-0-1
     Route: 048
     Dates: end: 20190525
  8. EXJADE [Suspect]
     Active Substance: DEFERASIROX
     Dosage: 1-0-1
     Route: 048
     Dates: start: 20190606, end: 20190616
  9. ZOPHREN                            /00955301/ [Suspect]
     Active Substance: ONDANSETRON
     Indication: ANTIEMETIC SUPPORTIVE CARE
     Dosage: 16 MILLIGRAM, QD
     Route: 048
     Dates: start: 20190524, end: 20190528
  10. DESFERAL [Suspect]
     Active Substance: DEFEROXAMINE MESYLATE
     Indication: IRON OVERLOAD
     Dosage: 1400 MILLIGRAM, QD
     Route: 042
     Dates: start: 20190523, end: 20190606
  11. CRESTOR [Concomitant]
     Active Substance: ROSUVASTATIN CALCIUM
     Indication: HYPERCHOLESTEROLAEMIA
     Dosage: 5 MILLIGRAM, QD
     Route: 048
     Dates: end: 20190522
  12. FLUCONAZOLE ARROW [Suspect]
     Active Substance: FLUCONAZOLE
     Indication: FUNGAL INFECTION
     Dosage: 2-0-0
     Route: 048
     Dates: start: 20190524, end: 20190527

REACTIONS (5)
  - Cholestasis [Recovering/Resolving]
  - Toxic skin eruption [Recovering/Resolving]
  - Rash [Recovering/Resolving]
  - Condition aggravated [Recovering/Resolving]
  - Hepatocellular injury [Recovering/Resolving]

NARRATIVE: CASE EVENT DATE: 20190527
